FAERS Safety Report 22345819 (Version 1)
Quarter: 2023Q2

REPORT INFORMATION
  Report Type: Spontaneous
  Country: JP (occurrence: None)
  Receive Date: 20230519
  Receipt Date: 20230519
  Transmission Date: 20230722
  Serious: Yes (Life-Threatening)
  Sender: FDA-Public Use
  Company Number: 2023A114228

PATIENT
  Age: 43 Year
  Sex: Female

DRUGS (2)
  1. LYNPARZA [Suspect]
     Active Substance: OLAPARIB
     Indication: Ovarian cancer recurrent
     Dosage: DOSE UNKNOWN
     Route: 048
  2. LYNPARZA [Suspect]
     Active Substance: OLAPARIB
     Indication: Ovarian cancer recurrent
     Dosage: DOSE UNKNOWN
     Route: 048

REACTIONS (1)
  - White blood cell count decreased [Unknown]
